FAERS Safety Report 13517521 (Version 1)
Quarter: 2017Q2

REPORT INFORMATION
  Report Type: Spontaneous
  Country: US (occurrence: US)
  Receive Date: 20170505
  Receipt Date: 20170505
  Transmission Date: 20170830
  Serious: Yes (Hospitalization)
  Sender: FDA-Public Use
  Company Number: None

PATIENT
  Age: 74 Year
  Sex: Female
  Weight: 92.6 kg

DRUGS (11)
  1. LIPITOR [Concomitant]
     Active Substance: ATORVASTATIN CALCIUM
  2. LASIX [Concomitant]
     Active Substance: FUROSEMIDE
  3. PROZAC [Concomitant]
     Active Substance: FLUOXETINE HYDROCHLORIDE
  4. FENTANYL. [Suspect]
     Active Substance: FENTANYL
     Indication: GASTROINTESTINAL TUBE INSERTION
     Dosage: DATES OF USE RECENT
     Route: 042
  5. PREVACID [Concomitant]
     Active Substance: LANSOPRAZOLE
  6. LUMINAL [Concomitant]
     Active Substance: PHENOBARBITAL SODIUM
  7. TIKOSYN [Concomitant]
     Active Substance: DOFETILIDE
  8. ZESTRIL [Concomitant]
     Active Substance: LISINOPRIL
  9. COREG [Concomitant]
     Active Substance: CARVEDILOL
  10. MAG OX [Concomitant]
     Active Substance: MAGNESIUM OXIDE
  11. COUMADIN [Concomitant]
     Active Substance: WARFARIN SODIUM

REACTIONS (1)
  - Hypoxia [None]

NARRATIVE: CASE EVENT DATE: 20160921
